FAERS Safety Report 10215449 (Version 5)
Quarter: 2015Q4

REPORT INFORMATION
  Report Type: Report from Study
  Country: FR (occurrence: FR)
  Receive Date: 20140604
  Receipt Date: 20151207
  Transmission Date: 20160304
  Serious: Yes (Death)
  Sender: FDA-Public Use
  Company Number: FR-ROCHE-1409520

PATIENT
  Age: 51 Year
  Sex: Male
  Weight: 83 kg

DRUGS (21)
  1. OXYNORM [Concomitant]
     Active Substance: OXYCODONE HYDROCHLORIDE
     Dosage: 1-1-1
     Route: 065
  2. KEPPRA [Concomitant]
     Active Substance: LEVETIRACETAM
     Dosage: 1-1-1
     Route: 065
  3. BUSILVEX [Suspect]
     Active Substance: BUSULFAN
     Indication: CENTRAL NERVOUS SYSTEM LYMPHOMA
     Dosage: LAST DOSE PRIOR TO EVENT 66 MG
     Route: 042
     Dates: start: 20091126, end: 20091128
  4. ETOPOSIDE. [Suspect]
     Active Substance: ETOPOSIDE
     Indication: CENTRAL NERVOUS SYSTEM LYMPHOMA
     Dosage: TOTAL DOSE WAS 400 MG AND LAST DOSE PRIOR TO EVENT 200 MG
     Route: 042
     Dates: start: 20090813, end: 20090908
  5. BICNU [Suspect]
     Active Substance: CARMUSTINE
     Indication: CENTRAL NERVOUS SYSTEM LYMPHOMA
     Dosage: TOTAL DOSE WAS 299.7 MG AND LAST DOSE PRIOR TO EVENT 149.85 MG
     Route: 042
     Dates: start: 20090814, end: 20090909
  6. EFFERALGAN [Concomitant]
     Active Substance: ACETAMINOPHEN
     Dosage: 2-2-2
     Route: 065
  7. METHOTREXATE [Suspect]
     Active Substance: METHOTREXATE
     Indication: CENTRAL NERVOUS SYSTEM LYMPHOMA
     Dosage: TOTAL DOSE WAS 6G AND LAST DOSE PRIOR TO EVENT 24G
     Route: 042
     Dates: start: 20090812, end: 20090924
  8. RIVOTRIL [Suspect]
     Active Substance: CLONAZEPAM
     Indication: CENTRAL NERVOUS SYSTEM LYMPHOMA
     Dosage: 5 DROPS: LAST DOSE ADMINISTERED WAS 0.25 MG AND THE CUMULATIVE DOSE SINCE THE 1ST ADMINISTRATION WAS
     Route: 048
     Dates: start: 20091201, end: 20091212
  9. METHYLPREDNISOLONE. [Suspect]
     Active Substance: METHYLPREDNISOLONE
     Indication: CENTRAL NERVOUS SYSTEM LYMPHOMA
     Route: 042
  10. OXYCONTIN [Concomitant]
     Active Substance: OXYCODONE HYDROCHLORIDE
     Route: 065
  11. NEURONTIN [Concomitant]
     Active Substance: GABAPENTIN
     Dosage: 1-0-1
     Route: 065
  12. RITUXIMAB [Suspect]
     Active Substance: RITUXIMAB
     Indication: CENTRAL NERVOUS SYSTEM LYMPHOMA
     Dosage: TOTAL DOSE WAS 3000 MG AND LAST DOSE PRIOR TO EVENT 750 MG
     Route: 042
     Dates: start: 20090812, end: 20091027
  13. RIVOTRIL [Suspect]
     Active Substance: CLONAZEPAM
     Indication: CENTRAL NERVOUS SYSTEM LYMPHOMA
     Dosage: 5 DROPS
     Route: 042
     Dates: start: 20091125, end: 20091201
  14. ENDOXAN [Suspect]
     Active Substance: CYCLOPHOSPHAMIDE
     Indication: CENTRAL NERVOUS SYSTEM LYMPHOMA
     Dosage: TOTAL DOSE WAS 9960 MG AND LAST DOSE PRIOR TO EVENT 3320 MG
     Route: 042
     Dates: start: 20091129, end: 20091130
  15. METHYLPREDNISOLONE. [Suspect]
     Active Substance: METHYLPREDNISOLONE
     Indication: CENTRAL NERVOUS SYSTEM LYMPHOMA
     Route: 048
  16. LYRICA [Concomitant]
     Active Substance: PREGABALIN
     Dosage: 1-0-1
     Route: 065
  17. UROMITEXAN [Suspect]
     Active Substance: MESNA
     Indication: CENTRAL NERVOUS SYSTEM LYMPHOMA
     Route: 042
     Dates: start: 20091129, end: 20091130
  18. FORLAX [Concomitant]
     Active Substance: POLYETHYLENE GLYCOL 4000
     Dosage: 0-1-0
     Route: 065
  19. ARACYTINE [Suspect]
     Active Substance: CYTARABINE
     Indication: CENTRAL NERVOUS SYSTEM LYMPHOMA
     Dosage: TOTAL DOSE WAS 24 G AND LAST DOSE PRIOR TO EVENT 6 G
     Route: 042
     Dates: start: 20091006, end: 20091028
  20. THIOTEPA. [Suspect]
     Active Substance: THIOTEPA
     Indication: CENTRAL NERVOUS SYSTEM LYMPHOMA
     Dosage: TOTAL DOSE WAS 1500 MG AND LAST DOSE PRIOR TO EVENT 500 MG
     Route: 042
     Dates: start: 20091123, end: 20091125
  21. LAROXYL [Concomitant]
     Active Substance: AMITRIPTYLINE
     Dosage: TEN DROPS AT BEDTIME
     Route: 065

REACTIONS (1)
  - Colon cancer metastatic [Fatal]

NARRATIVE: CASE EVENT DATE: 20140428
